FAERS Safety Report 24986576 (Version 2)
Quarter: 2025Q1

REPORT INFORMATION
  Report Type: Spontaneous
  Country: AT (occurrence: AT)
  Receive Date: 20250219
  Receipt Date: 20250307
  Transmission Date: 20250409
  Serious: Yes (Hospitalization, Other)
  Sender: SANDOZ
  Company Number: AT-ABBVIE-6110936

PATIENT
  Age: 38 Year
  Sex: Female

DRUGS (33)
  1. CERTOLIZUMAB [Suspect]
     Active Substance: CERTOLIZUMAB
     Indication: Product used for unknown indication
     Route: 065
     Dates: end: 202307
  2. ETANERCEPT [Suspect]
     Active Substance: ETANERCEPT
     Indication: Product used for unknown indication
     Route: 065
     Dates: end: 202009
  3. GOLIMUMAB [Suspect]
     Active Substance: GOLIMUMAB
     Indication: Product used for unknown indication
     Route: 065
     Dates: end: 202304
  4. GUSELKUMAB [Suspect]
     Active Substance: GUSELKUMAB
     Indication: Product used for unknown indication
     Route: 065
     Dates: end: 202006
  5. HUMIRA [Suspect]
     Active Substance: ADALIMUMAB
     Indication: Psoriatic arthropathy
     Route: 058
     Dates: end: 201607
  6. IXEKIZUMAB [Suspect]
     Active Substance: IXEKIZUMAB
     Indication: Product used for unknown indication
     Route: 065
  7. SKYRIZI [Suspect]
     Active Substance: RISANKIZUMAB-RZAA
     Indication: Psoriatic arthropathy
     Route: 058
     Dates: end: 202209
  8. ANAKINRA [Concomitant]
     Active Substance: ANAKINRA
     Indication: Product used for unknown indication
     Route: 065
     Dates: end: 202311
  9. ANAKINRA [Concomitant]
     Active Substance: ANAKINRA
     Route: 065
     Dates: end: 202311
  10. ANAKINRA [Concomitant]
     Active Substance: ANAKINRA
     Route: 065
     Dates: end: 202311
  11. ANAKINRA [Concomitant]
     Active Substance: ANAKINRA
     Route: 065
     Dates: end: 202311
  12. BIMEKIZUMAB [Concomitant]
     Active Substance: BIMEKIZUMAB
     Indication: Product used for unknown indication
     Route: 065
  13. ISOTRETINOIN [Concomitant]
     Active Substance: ISOTRETINOIN
     Indication: Product used for unknown indication
     Route: 065
     Dates: start: 202410
  14. ISOTRETINOIN [Concomitant]
     Active Substance: ISOTRETINOIN
     Route: 065
     Dates: start: 202410
  15. ISOTRETINOIN [Concomitant]
     Active Substance: ISOTRETINOIN
     Route: 065
     Dates: start: 202410
  16. DEUCRAVACITINIB [Concomitant]
     Active Substance: DEUCRAVACITINIB
     Indication: Product used for unknown indication
     Route: 065
     Dates: start: 202310
  17. DEUCRAVACITINIB [Concomitant]
     Active Substance: DEUCRAVACITINIB
     Route: 065
     Dates: start: 202310
  18. DEUCRAVACITINIB [Concomitant]
     Active Substance: DEUCRAVACITINIB
     Route: 065
     Dates: start: 202310
  19. INFLIXIMAB [Concomitant]
     Active Substance: INFLIXIMAB
     Indication: Product used for unknown indication
     Route: 065
     Dates: end: 202309
  20. INFLIXIMAB [Concomitant]
     Active Substance: INFLIXIMAB
     Route: 065
     Dates: end: 202309
  21. INFLIXIMAB [Concomitant]
     Active Substance: INFLIXIMAB
     Route: 065
     Dates: end: 202309
  22. SECUKINUMAB [Concomitant]
     Active Substance: SECUKINUMAB
     Indication: Product used for unknown indication
     Route: 065
     Dates: start: 201607, end: 201911
  23. SECUKINUMAB [Concomitant]
     Active Substance: SECUKINUMAB
     Route: 065
     Dates: start: 201607, end: 201911
  24. SECUKINUMAB [Concomitant]
     Active Substance: SECUKINUMAB
     Route: 065
     Dates: start: 201607, end: 201911
  25. SPESOLIMAB [Concomitant]
     Active Substance: SPESOLIMAB
     Indication: Product used for unknown indication
     Route: 065
     Dates: end: 202305
  26. SPESOLIMAB [Concomitant]
     Active Substance: SPESOLIMAB
     Route: 065
     Dates: end: 202305
  27. SPESOLIMAB [Concomitant]
     Active Substance: SPESOLIMAB
     Route: 065
     Dates: end: 202305
  28. METHYLPREDNISOLONE [Concomitant]
     Active Substance: METHYLPREDNISOLONE
     Indication: Product used for unknown indication
     Route: 065
     Dates: end: 202303
  29. METHYLPREDNISOLONE [Concomitant]
     Active Substance: METHYLPREDNISOLONE
     Route: 065
     Dates: end: 202303
  30. METHYLPREDNISOLONE [Concomitant]
     Active Substance: METHYLPREDNISOLONE
     Route: 065
     Dates: end: 202303
  31. USTEKINUMAB [Concomitant]
     Active Substance: USTEKINUMAB
     Indication: Product used for unknown indication
     Route: 065
     Dates: start: 202009, end: 202112
  32. USTEKINUMAB [Concomitant]
     Active Substance: USTEKINUMAB
     Route: 065
     Dates: start: 202009, end: 202112
  33. USTEKINUMAB [Concomitant]
     Active Substance: USTEKINUMAB
     Route: 065
     Dates: start: 202009, end: 202112

REACTIONS (19)
  - Dermatitis exfoliative generalised [Unknown]
  - Arthritis [Unknown]
  - Pyrexia [Unknown]
  - Weight increased [Unknown]
  - Psoriatic arthropathy [Unknown]
  - Sacroiliitis [Unknown]
  - Spondylitis [Unknown]
  - Breast swelling [Unknown]
  - Inflammatory pain [Unknown]
  - Psoriasis area severity index increased [Unknown]
  - Skin striae [Unknown]
  - Stress [Unknown]
  - Liver disorder [Unknown]
  - Pustular psoriasis [Unknown]
  - Drug ineffective [Unknown]
  - Therapeutic product effect incomplete [Unknown]
  - Therapeutic product effect decreased [Unknown]
  - Drug ineffective [Unknown]
  - Therapeutic product effect incomplete [Unknown]

NARRATIVE: CASE EVENT DATE: 20220101
